FAERS Safety Report 7103805-1 (Version None)
Quarter: 2010Q4

REPORT INFORMATION
  Report Type: 
  Country: None (occurrence: None)
  Receive Date: 20101115
  Receipt Date: 20101108
  Transmission Date: 20110411
  Serious: Yes (Other)
  Sender: FDA-Public Use
  Company Number: TW-PFIZER INC-2010141853

PATIENT
  Age: 75 Year
  Sex: Male

DRUGS (6)
  1. DETRUSITOL SR [Suspect]
     Indication: HYPERTONIC BLADDER
     Dosage: 4 MG, 1X/DAY
     Route: 048
     Dates: start: 20101104
  2. APROVEL [Concomitant]
     Indication: HYPERTENSION
     Dosage: 150 MG, 1X/DAY
  3. ADALAT [Concomitant]
     Indication: HYPERTENSION
     Dosage: 30 MG, 1X/DAY
  4. DOXABEN [Concomitant]
     Indication: HYPERTENSION
     Dosage: 4 MG, 2X/DAY
  5. LANOXIN [Concomitant]
     Indication: ARRHYTHMIA
     Dosage: 0.25 MG, 1X/DAY
  6. PROSCAR [Concomitant]
     Indication: BENIGN PROSTATIC HYPERPLASIA
     Dosage: 5 MG, 1X/DAY

REACTIONS (2)
  - DIZZINESS [None]
  - HYPERTENSION [None]
